FAERS Safety Report 24125650 (Version 2)
Quarter: 2025Q1

REPORT INFORMATION
  Report Type: Spontaneous
  Country: US (occurrence: US)
  Receive Date: 20240723
  Receipt Date: 20250326
  Transmission Date: 20250409
  Serious: Yes (Hospitalization, Other)
  Sender: PFIZER
  Company Number: US-PFIZER INC-PV202400095014

PATIENT
  Age: 59 Year
  Sex: Female

DRUGS (3)
  1. XELJANZ XR [Suspect]
     Active Substance: TOFACITINIB CITRATE
     Indication: Rheumatoid arthritis
     Dosage: 11 MG, 1X/DAY
     Route: 048
     Dates: start: 20190611
  2. XELJANZ XR [Suspect]
     Active Substance: TOFACITINIB CITRATE
     Dosage: 11 MG
     Route: 048
     Dates: start: 20190611
  3. METHOTREXATE [Concomitant]
     Active Substance: METHOTREXATE
     Route: 048

REACTIONS (6)
  - Spinal fusion surgery [Unknown]
  - Osteoporosis [Unknown]
  - Drug effect less than expected [Unknown]
  - Product dose omission in error [Unknown]
  - Bronchitis [Unknown]
  - Illness [Unknown]

NARRATIVE: CASE EVENT DATE: 20200501
